FAERS Safety Report 25793855 (Version 2)
Quarter: 2025Q4

REPORT INFORMATION
  Report Type: Report from Study
  Country: US (occurrence: US)
  Receive Date: 20250912
  Receipt Date: 20251212
  Transmission Date: 20260117
  Serious: Yes (Hospitalization)
  Sender: ABBVIE
  Company Number: US-ABBVIE-6453847

PATIENT
  Age: 66 Year
  Sex: Male

DRUGS (1)
  1. SKYRIZI [Suspect]
     Active Substance: RISANKIZUMAB-RZAA
     Indication: Crohn^s disease
     Route: 058

REACTIONS (6)
  - Appendicectomy [Unknown]
  - Urinary tract infection [Unknown]
  - Cystitis [Unknown]
  - Fistula [Unknown]
  - Diarrhoea [Unknown]
  - Device dislocation [Unknown]

NARRATIVE: CASE EVENT DATE: 20251001
